FAERS Safety Report 10284979 (Version 2)
Quarter: 2014Q3

REPORT INFORMATION
  Report Type: Spontaneous
  Country: GB (occurrence: GB)
  Receive Date: 20140708
  Receipt Date: 20140730
  Transmission Date: 20150326
  Serious: Yes (Death, Hospitalization)
  Sender: FDA-Public Use
  Company Number: GB-GLAXOSMITHKLINE-B1010799A

PATIENT
  Age: 71 Year
  Sex: Male

DRUGS (18)
  1. RANITIDINE [Concomitant]
     Active Substance: RANITIDINE\RANITIDINE HYDROCHLORIDE
  2. AMITRIPTYLINE [Concomitant]
     Active Substance: AMITRIPTYLINE
  3. SIMVASTATIN. [Concomitant]
     Active Substance: SIMVASTATIN
  4. ONDANSETRON [Concomitant]
     Active Substance: ONDANSETRON
  5. ALLOPURINOL. [Concomitant]
     Active Substance: ALLOPURINOL
  6. MORPHINE [Concomitant]
     Active Substance: MORPHINE
  7. DEXTROSE. [Concomitant]
     Active Substance: DEXTROSE
  8. CYCLIZINE [Concomitant]
     Active Substance: CYCLIZINE
  9. VOTRIENT [Suspect]
     Active Substance: PAZOPANIB HYDROCHLORIDE
     Indication: METASTATIC RENAL CELL CARCINOMA
     Route: 065
     Dates: start: 20140516, end: 20140620
  10. CLOPIDOGREL [Concomitant]
     Active Substance: CLOPIDOGREL BISULFATE
  11. TAZOCIN [Concomitant]
     Active Substance: PIPERACILLIN SODIUM\TAZOBACTAM SODIUM
  12. METOCLOPRAMIDE. [Concomitant]
     Active Substance: METOCLOPRAMIDE
  13. ENOXAPARIN [Concomitant]
     Active Substance: ENOXAPARIN
  14. FUROSEMIDE. [Concomitant]
     Active Substance: FUROSEMIDE
     Dates: end: 201406
  15. FLUCONAZOLE. [Concomitant]
     Active Substance: FLUCONAZOLE
  16. BISOPROLOL [Concomitant]
     Active Substance: BISOPROLOL
  17. DIGOXIN. [Concomitant]
     Active Substance: DIGOXIN
  18. MIDAZOLAM [Concomitant]
     Active Substance: MIDAZOLAM\MIDAZOLAM HYDROCHLORIDE

REACTIONS (5)
  - Aspartate aminotransferase increased [Unknown]
  - Hepatotoxicity [Fatal]
  - Dyspnoea [Unknown]
  - Alanine aminotransferase increased [Unknown]
  - Blood bilirubin increased [Unknown]
